FAERS Safety Report 20289770 (Version 3)
Quarter: 2022Q1

REPORT INFORMATION
  Report Type: Spontaneous
  Country: US (occurrence: US)
  Receive Date: 20220104
  Receipt Date: 20220302
  Transmission Date: 20220424
  Serious: No
  Sender: FDA-Public Use
  Company Number: US-TAKEDA-2021TUS083169

PATIENT
  Sex: Male
  Weight: 68 kg

DRUGS (2)
  1. EXKIVITY [Suspect]
     Active Substance: MOBOCERTINIB
     Indication: Lung neoplasm malignant
     Dosage: 160 MILLIGRAM, QD
     Route: 048
     Dates: start: 20211126
  2. EXKIVITY [Suspect]
     Active Substance: MOBOCERTINIB
     Dosage: 120 MILLIGRAM, QD
     Route: 048

REACTIONS (22)
  - Chest discomfort [Unknown]
  - Pain [Unknown]
  - Dry mouth [Unknown]
  - Renal function test abnormal [Recovering/Resolving]
  - Dry throat [Recovering/Resolving]
  - Skin discolouration [Recovering/Resolving]
  - Dyspnoea [Unknown]
  - Dehydration [Recovering/Resolving]
  - Nasal dryness [Recovering/Resolving]
  - Dysphagia [Recovering/Resolving]
  - Increased tendency to bruise [Recovering/Resolving]
  - Insomnia [Recovering/Resolving]
  - Feeling abnormal [Recovering/Resolving]
  - Blood pressure increased [Unknown]
  - Cough [Unknown]
  - Stomatitis [Unknown]
  - Pruritus [Unknown]
  - Dry skin [Recovering/Resolving]
  - Headache [Recovering/Resolving]
  - Arthralgia [Recovering/Resolving]
  - Myalgia [Recovering/Resolving]
  - Product dose omission issue [Unknown]
